FAERS Safety Report 24355852 (Version 1)
Quarter: 2024Q3

REPORT INFORMATION
  Report Type: Report from Study
  Country: JP (occurrence: JP)
  Receive Date: 20240924
  Receipt Date: 20240924
  Transmission Date: 20241017
  Serious: Yes (Hospitalization)
  Sender: TAKEDA
  Company Number: JP-TAKEDA-2024TJP002012

PATIENT
  Age: 54 Year
  Sex: Male

DRUGS (5)
  1. VEDOLIZUMAB [Suspect]
     Active Substance: VEDOLIZUMAB
     Indication: Crohn^s disease
     Dosage: 300 MILLIGRAM
     Route: 065
     Dates: start: 20220922
  2. AMINO ACIDS\CARBOHYDRATES\MINERALS\SOYBEAN OIL\VITAMINS [Concomitant]
     Active Substance: AMINO ACIDS\CARBOHYDRATES\MINERALS\SOYBEAN OIL\VITAMINS
     Indication: Crohn^s disease
     Dosage: UNK
     Route: 065
  3. MIYA-BM [Concomitant]
     Active Substance: CLOSTRIDIUM BUTYRICUM SPORES STRAIN M-55
     Indication: Crohn^s disease
     Dosage: UNK
     Route: 065
  4. URSODIOL [Concomitant]
     Active Substance: URSODIOL
     Dosage: UNK
     Route: 065
  5. SHAKUYAKUKANZOTO [Concomitant]
     Active Substance: HERBALS
     Dosage: UNK
     Route: 065
     Dates: end: 20221207

REACTIONS (6)
  - Varices oesophageal [Recovered/Resolved]
  - High frequency ablation [Recovered/Resolved]
  - Varices oesophageal [Recovered/Resolved]
  - Vomiting [Recovered/Resolved]
  - Anaemia [Recovered/Resolved]
  - Weight decreased [Not Recovered/Not Resolved]

NARRATIVE: CASE EVENT DATE: 20221012
